FAERS Safety Report 10744893 (Version 1)
Quarter: 2015Q1

REPORT INFORMATION
  Report Type: Spontaneous
  Country: US (occurrence: None)
  Receive Date: 20150126
  Receipt Date: 20150126
  Transmission Date: 20150721
  Serious: No
  Sender: FDA-Public Use
  Company Number: None

PATIENT
  Age: 36 Year
  Sex: Female
  Weight: 70.76 kg

DRUGS (1)
  1. BUPROPION XL [Suspect]
     Active Substance: BUPROPION
     Indication: DEPRESSION
     Route: 048

REACTIONS (12)
  - Mood swings [None]
  - Somnolence [None]
  - Depression [None]
  - Product quality issue [None]
  - Food craving [None]
  - Product substitution issue [None]
  - Gastric disorder [None]
  - Weight increased [None]
  - Drug ineffective [None]
  - Insomnia [None]
  - Paranoia [None]
  - Nicotine dependence [None]

NARRATIVE: CASE EVENT DATE: 20150125
